FAERS Safety Report 9066053 (Version 1)
Quarter: 2013Q1

REPORT INFORMATION
  Report Type: Report from Study
  Country: US (occurrence: US)
  Receive Date: 20130131
  Receipt Date: 20130131
  Transmission Date: 20140127
  Serious: No
  Sender: FDA-Public Use
  Company Number: US-ABBOTT-12P-163-1004813-00

PATIENT
  Age: 27 Year
  Sex: Female
  Weight: 63.56 kg

DRUGS (8)
  1. HUMIRA [Suspect]
     Indication: CROHN^S DISEASE
     Dosage: LOADING DOSE
     Dates: start: 20121031
  2. FERROUS GLUCONATE [Concomitant]
     Indication: MINERAL SUPPLEMENTATION
  3. NUVARING [Concomitant]
     Indication: CONTRACEPTION
  4. MULTIVITAMIN [Concomitant]
     Indication: VITAMIN SUPPLEMENTATION
  5. PENTASA [Concomitant]
     Indication: CROHN^S DISEASE
  6. VITAMIN C [Concomitant]
     Indication: VITAMIN SUPPLEMENTATION
  7. VITAMIN E [Concomitant]
     Indication: VITAMIN SUPPLEMENTATION
  8. MERCAPTOURINE [Concomitant]
     Indication: CROHN^S DISEASE

REACTIONS (1)
  - Headache [Recovering/Resolving]
